FAERS Safety Report 4975165-3 (Version None)
Quarter: 2006Q2

REPORT INFORMATION
  Report Type: 
  Country: None (occurrence: None)
  Receive Date: 20060417
  Receipt Date: 20060417
  Transmission Date: 20061013
  Serious: Yes (Disabling)
  Sender: FDA-Public Use
  Company Number: None

PATIENT
  Age: 29 Year
  Sex: Female
  Weight: 54.4316 kg

DRUGS (2)
  1. OFLOXACIN [Suspect]
     Indication: CONJUNCTIVITIS INFECTIVE
     Dosage: 1-2 DROPS   4 TIMES DAILY   OPHTHALMIC
     Route: 047
     Dates: start: 20060104, end: 20060108
  2. OFLOXACIN [Suspect]
     Indication: LOCAL ANTIBACTERIAL THERAPY
     Dosage: 1-2 DROPS   4 TIMES DAILY   OPHTHALMIC
     Route: 047
     Dates: start: 20060104, end: 20060108

REACTIONS (7)
  - BLINDNESS TRANSIENT [None]
  - EYE SWELLING [None]
  - LACRIMATION INCREASED [None]
  - OCULAR HYPERAEMIA [None]
  - PHOTOPHOBIA [None]
  - VISION BLURRED [None]
  - VISUAL DISTURBANCE [None]
